FAERS Safety Report 8917121 (Version 1)
Quarter: 2012Q4

REPORT INFORMATION
  Report Type: 
  Country: US (occurrence: US)
  Receive Date: 20121120
  Receipt Date: 20121120
  Transmission Date: 20130627
  Serious: No
  Sender: FDA-Public Use
  Company Number: US-ALLERGAN-1212092US

PATIENT
  Sex: Female

DRUGS (2)
  1. LASTACAFT [Suspect]
     Indication: DRUG USE FOR UNKNOWN INDICATION
     Route: 047
  2. LASTACAFT [Suspect]
     Route: 047

REACTIONS (2)
  - Eye inflammation [Recovering/Resolving]
  - Ocular hyperaemia [Recovering/Resolving]
